FAERS Safety Report 7349771-5 (Version None)
Quarter: 2011Q1

REPORT INFORMATION
  Report Type: 
  Country: None (occurrence: None)
  Receive Date: 20110314
  Receipt Date: 20110303
  Transmission Date: 20110831
  Serious: Yes (Other)
  Sender: FDA-Public Use
  Company Number: TH-PERRIGO-11TH001975

PATIENT
  Age: 46 Year

DRUGS (3)
  1. CLOTRIMAZOLE [Suspect]
     Indication: DRY SKIN
     Dosage: UNKNOWN
     Route: 061
  2. BETAMATHASONE DIPROPIONATE [Suspect]
     Indication: DRY SKIN
     Dosage: 4.2 G IN PERIOD
     Route: 061
  3. GENTAMICIN SULFATE [Suspect]
     Indication: DRY SKIN
     Dosage: UNKNOWN
     Route: 061

REACTIONS (1)
  - CUSHING'S SYNDROME [None]
